FAERS Safety Report 4445178-9 (Version None)
Quarter: 2004Q3

REPORT INFORMATION
  Report Type: 
  Country: None (occurrence: None)
  Receive Date: 20040903
  Receipt Date: 20040824
  Transmission Date: 20050211
  Serious: Yes (Death)
  Sender: FDA-Public Use
  Company Number: 163-20785-04080523

PATIENT
  Age: 40 Year
  Sex: Male
  Weight: 132.4 kg

DRUGS (7)
  1. THALOMID [Suspect]
     Indication: MALIGNANT MELANOMA
     Dosage: SEE IMAGE ORAL
     Route: 048
     Dates: start: 20040720, end: 20040802
  2. THALOMID [Suspect]
     Indication: METASTASES TO CENTRAL NERVOUS SYSTEM
     Dosage: SEE IMAGE ORAL
     Route: 048
     Dates: start: 20040720, end: 20040802
  3. THALOMID [Suspect]
     Indication: MALIGNANT MELANOMA
     Dosage: SEE IMAGE ORAL
     Route: 048
     Dates: start: 20040803, end: 20040814
  4. THALOMID [Suspect]
     Indication: METASTASES TO CENTRAL NERVOUS SYSTEM
     Dosage: SEE IMAGE ORAL
     Route: 048
     Dates: start: 20040803, end: 20040814
  5. TEMOZOLOMIDE (TEMOZOLOMIDE) [Suspect]
     Indication: MALIGNANT MELANOMA
     Dosage: 75 MG/M^2, QD,ORAL
     Route: 048
     Dates: start: 20040720, end: 20040814
  6. TEMOZOLOMIDE (TEMOZOLOMIDE) [Suspect]
     Indication: METASTASES TO CENTRAL NERVOUS SYSTEM
     Dosage: 75 MG/M^2, QD,ORAL
     Route: 048
     Dates: start: 20040720, end: 20040814
  7. DECADRON [Concomitant]

REACTIONS (9)
  - ARRHYTHMIA [None]
  - BRAIN HERNIATION [None]
  - FEELING ABNORMAL [None]
  - HAEMORRHAGE INTRACRANIAL [None]
  - HEADACHE [None]
  - MYOCARDIAL INFARCTION [None]
  - OEDEMA PERIPHERAL [None]
  - PULMONARY EMBOLISM [None]
  - SUDDEN DEATH [None]
